FAERS Safety Report 18626877 (Version 1)
Quarter: 2020Q4

REPORT INFORMATION
  Report Type: Spontaneous
  Country: US (occurrence: US)
  Receive Date: 20201217
  Receipt Date: 20201217
  Transmission Date: 20210114
  Serious: Yes (Hospitalization)
  Sender: FDA-Public Use
  Company Number: US-AXELLIA-003581

PATIENT
  Age: 48 Year
  Sex: Female
  Weight: 89.1 kg

DRUGS (1)
  1. VANCOMYCIN [Suspect]
     Active Substance: VANCOMYCIN
     Indication: ARTERIOVENOUS FISTULA SITE INFECTION
     Dosage: STRENGTH: 10000 MG, TIMES 6
     Route: 042
     Dates: start: 20200128, end: 20200128

REACTIONS (1)
  - Drug hypersensitivity [Unknown]

NARRATIVE: CASE EVENT DATE: 20200128
